FAERS Safety Report 11054713 (Version 1)
Quarter: 2015Q2

REPORT INFORMATION
  Report Type: Spontaneous
  Country: US (occurrence: None)
  Receive Date: 20150420
  Receipt Date: 20150420
  Transmission Date: 20150821
  Serious: Yes (Other)
  Sender: FDA-Public Use
  Company Number: 2015AKN00177

PATIENT
  Age: 38 Year
  Sex: Female
  Weight: 59.4 kg

DRUGS (1)
  1. MYORISAN [Suspect]
     Active Substance: ISOTRETINOIN
     Indication: ACNE CYSTIC
     Dates: start: 20150202, end: 20150311

REACTIONS (5)
  - Urinary tract infection [None]
  - Mood swings [None]
  - Depression [None]
  - Blood urine present [None]
  - Back pain [None]

NARRATIVE: CASE EVENT DATE: 20150302
